FAERS Safety Report 4777639-7 (Version None)
Quarter: 2005Q3

REPORT INFORMATION
  Report Type: 
  Country: None (occurrence: None)
  Receive Date: 20050921
  Receipt Date: 20050906
  Transmission Date: 20060218
  Serious: Yes (Other)
  Sender: FDA-Public Use
  Company Number: USA0509107250

PATIENT
  Age: 58 Year
  Sex: Female

DRUGS (2)
  1. XIGRIS [Suspect]
     Indication: STAPHYLOCOCCAL SEPSIS
     Dosage: 24 UG/KG/HR
     Dates: end: 20050904
  2. PRESSOR [Concomitant]

REACTIONS (2)
  - OXYGEN SATURATION DECREASED [None]
  - PNEUMONIA [None]
